FAERS Safety Report 16716087 (Version 1)
Quarter: 2019Q3

REPORT INFORMATION
  Report Type: Spontaneous
  Country: US (occurrence: US)
  Receive Date: 20190819
  Receipt Date: 20190819
  Transmission Date: 20191005
  Serious: Yes (Other)
  Sender: FDA-Public Use
  Company Number: US-AKORN PHARMACEUTICALS-2019AKN01690

PATIENT
  Age: 16 Year
  Sex: Male

DRUGS (1)
  1. MYORISAN [Suspect]
     Active Substance: ISOTRETINOIN
     Indication: ACNE
     Dosage: 40 MG, 1X/DAY
     Route: 048
     Dates: start: 20181128, end: 2019

REACTIONS (5)
  - Depression [Unknown]
  - Mood altered [Unknown]
  - Treatment noncompliance [Recovered/Resolved]
  - Off label use [Recovered/Resolved]
  - Social avoidant behaviour [Unknown]

NARRATIVE: CASE EVENT DATE: 20181128
